FAERS Safety Report 5661817-9 (Version None)
Quarter: 2008Q1

REPORT INFORMATION
  Report Type: 
  Country: None (occurrence: None)
  Receive Date: 20080312
  Receipt Date: 20080305
  Transmission Date: 20080703
  Serious: Yes (Other)
  Sender: FDA-Public Use
  Company Number: US-MERCK-0802USA04907

PATIENT
  Age: 67 Year
  Sex: Female

DRUGS (3)
  1. ZETIA [Suspect]
     Indication: BLOOD CHOLESTEROL INCREASED
     Route: 048
     Dates: start: 20070101, end: 20080222
  2. [THERAPY UNSPECIFIED] [Concomitant]
     Route: 065
  3. PRINIVIL [Concomitant]
     Route: 048

REACTIONS (4)
  - DIZZINESS [None]
  - GALLBLADDER DISORDER [None]
  - HEPATIC ENZYME INCREASED [None]
  - MUSCLE SPASMS [None]
